FAERS Safety Report 14268228 (Version 1)
Quarter: 2017Q4

REPORT INFORMATION
  Report Type: Not Available
  Country: US (occurrence: US)
  Receive Date: 20171211
  Receipt Date: 20171211
  Transmission Date: 20180321
  Serious: No
  Sender: FDA-Public Use
  Company Number: US-ANIPHARMA-2017-US-003059

PATIENT
  Age: 43 Year
  Sex: Female
  Weight: 47.63 kg

DRUGS (1)
  1. VANCOMYCIN HYDROCHLORIDE CAPSULES [Suspect]
     Active Substance: VANCOMYCIN HYDROCHLORIDE
     Dosage: 1 CAP EVERY 6 HOURS
     Route: 048
     Dates: start: 20170316, end: 20170321

REACTIONS (5)
  - Condition aggravated [Unknown]
  - Diarrhoea [Unknown]
  - Drug ineffective [Unknown]
  - Pyrexia [Unknown]
  - Myalgia [Unknown]

NARRATIVE: CASE EVENT DATE: 20170316
